FAERS Safety Report 7719613-4 (Version None)
Quarter: 2011Q3

REPORT INFORMATION
  Report Type: 
  Country: None (occurrence: None)
  Receive Date: 20110830
  Receipt Date: 20110815
  Transmission Date: 20111222
  Serious: Yes (Hospitalization)
  Sender: FDA-Public Use
  Company Number: US-BAYER-2011-074819

PATIENT
  Age: 30 Year
  Sex: Female
  Weight: 63 kg

DRUGS (5)
  1. IBUPROFEN [Suspect]
     Indication: SELF INJURIOUS BEHAVIOUR
     Dosage: 60 DF, ONCE
     Route: 048
     Dates: start: 20110815, end: 20110815
  2. COCAINE [Suspect]
     Indication: SELF INJURIOUS BEHAVIOUR
  3. MIDOL LIQUID GELS [Suspect]
     Indication: SELF INJURIOUS BEHAVIOUR
     Dosage: UNK, BOTTLE COUNT 20S
     Route: 048
     Dates: start: 20110815, end: 20110815
  4. ASPIRIN [Suspect]
     Indication: SELF INJURIOUS BEHAVIOUR
     Dosage: 1458 MG, ONCE
     Route: 048
     Dates: start: 20110815, end: 20110815
  5. OPIUM ALKALOIDS AND DERIVATIVES [Suspect]
     Indication: SELF INJURIOUS BEHAVIOUR

REACTIONS (6)
  - CONFUSIONAL STATE [None]
  - DIARRHOEA [None]
  - NAUSEA [None]
  - DIZZINESS [None]
  - LETHARGY [None]
  - DISORIENTATION [None]
